FAERS Safety Report 23786415 (Version 2)
Quarter: 2024Q2

REPORT INFORMATION
  Report Type: Spontaneous
  Country: FR (occurrence: FR)
  Receive Date: 20240426
  Receipt Date: 20240510
  Transmission Date: 20240716
  Serious: Yes (Hospitalization)
  Sender: FDA-Public Use
  Company Number: None

PATIENT
  Age: 90 Year
  Sex: Female

DRUGS (7)
  1. INDAPAMIDE [Suspect]
     Active Substance: INDAPAMIDE
     Indication: Hypertension
     Dosage: 1.5 MG
     Route: 048
     Dates: end: 20100531
  2. DITROPAN [Suspect]
     Active Substance: OXYBUTYNIN CHLORIDE
     Indication: Urinary incontinence
     Dosage: SCORED TABLET
     Route: 048
     Dates: end: 20100531
  3. FENOFIBRATE [Suspect]
     Active Substance: FENOFIBRATE
     Indication: Hypercholesterolaemia
     Dosage: 300 MILLIGRAM, QD
     Route: 048
     Dates: end: 20100531
  4. CANDESARTAN CILEXETIL [Suspect]
     Active Substance: CANDESARTAN CILEXETIL
     Indication: Hypertension
     Dosage: SCORED TABLET
     Route: 048
     Dates: end: 20100531
  5. FENTANYL [Concomitant]
     Active Substance: FENTANYL\FENTANYL CITRATE
     Indication: Pain
     Dosage: 288 UG
     Route: 062
     Dates: start: 20100524
  6. IXPRIM [Suspect]
     Active Substance: ACETAMINOPHEN\TRAMADOL HYDROCHLORIDE
     Indication: Pain
     Dosage: 37.5 + 325 MG, 300 MG/D FOR LONG TIME
     Route: 048
     Dates: start: 20100522, end: 20100524
  7. DIETARY SUPPLEMENT [Concomitant]
     Active Substance: DIETARY SUPPLEMENT
     Indication: Enteral nutrition
     Dosage: UNK
     Route: 048

REACTIONS (3)
  - Inappropriate antidiuretic hormone secretion [Recovered/Resolved]
  - Dyspepsia [Recovered/Resolved]
  - Hyponatraemia [Recovered/Resolved]

NARRATIVE: CASE EVENT DATE: 20100531
